FAERS Safety Report 16676488 (Version 1)
Quarter: 2019Q3

REPORT INFORMATION
  Report Type: Report from Study
  Country: None (occurrence: HU)
  Receive Date: 20190807
  Receipt Date: 20190807
  Transmission Date: 20191004
  Serious: Yes (Hospitalization)
  Sender: FDA-Public Use
  Company Number: HU-ABBVIE-19K-076-2876827-00

PATIENT
  Age: 64 Year
  Sex: Male

DRUGS (9)
  1. ROSUVASTATIN SANDOZ [Concomitant]
     Active Substance: ROSUVASTATIN CALCIUM
     Indication: HYPERLIPIDAEMIA
     Dosage: IN THE EVENING
     Route: 048
     Dates: start: 2007
  2. MIDERIZONE [Concomitant]
     Indication: MUSCLE SPASMS
     Route: 048
     Dates: start: 2018
  3. LIPIDIL SUPRA [Concomitant]
     Active Substance: FENOFIBRATE
     Indication: HYPERLIPIDAEMIA
     Route: 048
     Dates: start: 2007
  4. CAVINTON COMFORTE [Concomitant]
     Indication: AMNESIA
     Dosage: 1 TABLET AT A TIME
     Route: 048
     Dates: start: 2007
  5. DUODOPA [Suspect]
     Active Substance: CARBIDOPA\LEVODOPA
     Indication: PARKINSON^S DISEASE
     Dosage: MORNING DOSE 5.0 ML; CD DURING DAY 3.5 ML/H; DURING NIGHT 2.5 ML/H; ?EXTRA DOSE 2.0 ML
     Route: 050
     Dates: start: 20190711
  6. ZYLLT [Concomitant]
     Active Substance: CLOPIDOGREL BISULFATE
     Indication: PROPHYLAXIS
     Route: 048
     Dates: start: 2007
  7. RALNEA [Concomitant]
     Indication: PARKINSON^S DISEASE
     Route: 048
     Dates: start: 2007
  8. FRONTIN [Concomitant]
     Active Substance: ALPRAZOLAM
     Indication: ANXIOLYTIC THERAPY
     Route: 048
     Dates: start: 2017
  9. VELAXIN [Concomitant]
     Indication: PERSISTENT DEPRESSIVE DISORDER
     Dosage: 2 + 1 TABLETS A DAY
     Route: 048
     Dates: start: 2017

REACTIONS (3)
  - Aggression [Not Recovered/Not Resolved]
  - Altered state of consciousness [Not Recovered/Not Resolved]
  - Hallucination [Not Recovered/Not Resolved]

NARRATIVE: CASE EVENT DATE: 20190724
